APPROVED DRUG PRODUCT: METOCLOPRAMIDE HYDROCHLORIDE
Active Ingredient: METOCLOPRAMIDE HYDROCHLORIDE
Strength: EQ 10MG BASE
Dosage Form/Route: TABLET;ORAL
Application: A070581 | Product #001
Applicant: STRIDES PHARMA INTERNATIONAL AG
Approved: Oct 17, 1985 | RLD: No | RS: No | Type: DISCN